FAERS Safety Report 5773525-4 (Version None)
Quarter: 2008Q2

REPORT INFORMATION
  Report Type: 
  Country: None (occurrence: None)
  Receive Date: 20080616
  Receipt Date: 20080605
  Transmission Date: 20081010
  Serious: Yes (Hospitalization)
  Sender: FDA-Public Use
  Company Number: IL-JNJFOC-20080601772

PATIENT
  Age: 3 Year
  Sex: Female

DRUGS (3)
  1. RISPERDAL [Suspect]
     Route: 065
  2. RISPERDAL [Suspect]
     Route: 065
  3. RISPERDAL [Suspect]
     Indication: AUTISM SPECTRUM DISORDER
     Route: 065

REACTIONS (1)
  - CYANOSIS [None]
